FAERS Safety Report 6332099-X (Version None)
Quarter: 2009Q3

REPORT INFORMATION
  Report Type: 
  Country: None (occurrence: None)
  Receive Date: 20090827
  Receipt Date: 20090827
  Transmission Date: 20100115
  Serious: No
  Sender: FDA-Public Use
  Company Number: None

PATIENT
  Sex: Female
  Weight: 48.0813 kg

DRUGS (1)
  1. LEVAQUIN [Suspect]
     Indication: SINUSITIS
     Dosage: 1 DAILY
     Dates: start: 20081013, end: 20081017

REACTIONS (3)
  - IMPAIRED WORK ABILITY [None]
  - MUSCLE DISORDER [None]
  - MUSCLE RUPTURE [None]
